FAERS Safety Report 9908580 (Version 1)
Quarter: 2014Q1

REPORT INFORMATION
  Report Type: Spontaneous
  Country: US (occurrence: None)
  Receive Date: 20140211
  Receipt Date: 20140211
  Transmission Date: 20141002
  Serious: Yes (Life-Threatening, Other)
  Sender: FDA-Public Use
  Company Number: 2014P1000877

PATIENT
  Age: 63 Year
  Sex: 0

DRUGS (6)
  1. MITOMYCIN [Suspect]
     Indication: BLADDER CANCER
     Route: 043
  2. MORPHINE [Concomitant]
  3. SILODOSIN [Concomitant]
  4. PRENISONE [Concomitant]
  5. DIPHENHYDRAMINE [Concomitant]
  6. ANTIBIOTICS [Concomitant]

REACTIONS (9)
  - Urinary retention [None]
  - Urinary tract infection [None]
  - Pelvic pain [None]
  - Chemical cystitis [None]
  - Contracted bladder [None]
  - Bladder perforation [None]
  - Necrotising fasciitis [None]
  - Skin graft [None]
  - Post procedural complication [None]
